FAERS Safety Report 4585607-3 (Version None)
Quarter: 2005Q1

REPORT INFORMATION
  Report Type: 
  Country: None (occurrence: None)
  Receive Date: 20050214
  Receipt Date: 20041007
  Transmission Date: 20050727
  Serious: Yes (Hospitalization)
  Sender: FDA-Public Use
  Company Number: 05-091

PATIENT
  Age: 72 Year
  Sex: Male

DRUGS (11)
  1. DEXAMETHASONE [Suspect]
     Indication: MULTIPLE MYELOMA
     Dosage: 40 MG/DAY, ORAL
     Route: 048
     Dates: start: 20030420, end: 20030507
  2. DEXAMETHASONE [Concomitant]
  3. VITAMIN B6 [Concomitant]
  4. DIGOXIN [Concomitant]
  5. BETHANECHOL CHLORIDE [Concomitant]
  6. HYDROCODONE WITH ACETAMINOPHEN [Concomitant]
  7. CALCITONIN-SALMON [Concomitant]
  8. SENNA [Concomitant]
  9. GABAPENTIN [Concomitant]
  10. TRIMETHOPRIM-SULFAMETHOXAZOLE [Concomitant]
  11. RANITIDINE [Concomitant]

REACTIONS (5)
  - DEHYDRATION [None]
  - HYPERGLYCAEMIA [None]
  - MALIGNANT NEOPLASM PROGRESSION [None]
  - MULTIPLE MYELOMA [None]
  - POLYURIA [None]
